FAERS Safety Report 8106625-4 (Version None)
Quarter: 2011Q4

REPORT INFORMATION
  Report Type: 
  Country: None (occurrence: None)
  Receive Date: 20111222
  Receipt Date: 20111118
  Transmission Date: 20120403
  Serious: Yes (Hospitalization)
  Sender: FDA-Public Use
  Company Number: UTC-012561

PATIENT
  Age: 54 Year
  Sex: Female
  Weight: 81.8 kg

DRUGS (3)
  1. TYVASO [Suspect]
     Indication: COR PULMONALE CHRONIC
     Dosage: 288 MCG (72 MCG,4 IN 1 D),INHALATION
     Route: 055
     Dates: start: 20091203
  2. COUMADIN [Concomitant]
  3. TRACLEER [Concomitant]

REACTIONS (2)
  - HIP SURGERY [None]
  - ARTHROPATHY [None]
